FAERS Safety Report 7998578-4 (Version None)
Quarter: 2011Q4

REPORT INFORMATION
  Report Type: 
  Country: None (occurrence: None)
  Receive Date: 20111221
  Receipt Date: 20111212
  Transmission Date: 20120403
  Serious: Yes (Hospitalization, Other)
  Sender: FDA-Public Use
  Company Number: ES-ACTELION-A-CH2011-57495

PATIENT
  Age: 60 Year
  Sex: Female

DRUGS (3)
  1. TRACLEER [Suspect]
     Indication: SKIN ULCER
     Dosage: 125 MG, UNK
     Route: 048
     Dates: start: 20110722, end: 20110801
  2. IMURAN [Suspect]
     Dosage: 50 MG, UNK
     Route: 048
     Dates: start: 20110710, end: 20110727
  3. TRACLEER [Suspect]
     Dosage: 62.5 MG, UNK
     Route: 048
     Dates: start: 20110901

REACTIONS (1)
  - PANCYTOPENIA [None]
